FAERS Safety Report 13474035 (Version 1)
Quarter: 2017Q2

REPORT INFORMATION
  Report Type: Spontaneous
  Country: US (occurrence: US)
  Receive Date: 20170424
  Receipt Date: 20170424
  Transmission Date: 20170830
  Serious: No
  Sender: FDA-Public Use
  Company Number: US-SA-2017SA021777

PATIENT
  Age: 69 Year
  Sex: Male

DRUGS (1)
  1. LOVENOX [Suspect]
     Active Substance: ENOXAPARIN SODIUM
     Indication: HIP ARTHROPLASTY
     Route: 051
     Dates: start: 201611, end: 20161220

REACTIONS (1)
  - Protein urine [Unknown]
